FAERS Safety Report 8649016 (Version 5)
Quarter: 2017Q4

REPORT INFORMATION
  Report Type: Report from Study
  Country: JP (occurrence: JP)
  Receive Date: 20120704
  Receipt Date: 20171026
  Transmission Date: 20180321
  Serious: Yes (Death, Hospitalization, Other)
  Sender: FDA-Public Use
  Company Number: PHHY2012JP009542

PATIENT
  Age: 70 Year
  Sex: Female

DRUGS (12)
  1. AFINITOR [Suspect]
     Active Substance: EVEROLIMUS
     Indication: CLEAR CELL RENAL CELL CARCINOMA
  2. BASEN [Concomitant]
     Active Substance: VOGLIBOSE
     Indication: PRODUCT USED FOR UNKNOWN INDICATION
     Dosage: 0.9 MG, UNK
     Route: 048
     Dates: start: 20110621, end: 20120124
  3. LASIX [Concomitant]
     Active Substance: FUROSEMIDE
     Dosage: 40 MG, UNK
     Route: 065
  4. ALDACTONE-A [Concomitant]
     Active Substance: SPIRONOLACTONE
     Indication: PRODUCT USED FOR UNKNOWN INDICATION
     Dosage: 25 MG, UNK
     Route: 048
     Dates: start: 20110621, end: 20120124
  5. OLMETEC [Concomitant]
     Active Substance: OLMESARTAN MEDOXOMIL
     Indication: PRODUCT USED FOR UNKNOWN INDICATION
     Dosage: 40 MG, UNK
     Route: 048
     Dates: start: 20110621, end: 20120124
  6. AMARYL [Concomitant]
     Active Substance: GLIMEPIRIDE
     Indication: PRODUCT USED FOR UNKNOWN INDICATION
     Dosage: 1 MG, UNK
     Route: 048
     Dates: start: 20110817, end: 20120124
  7. AFINITOR [Suspect]
     Active Substance: EVEROLIMUS
     Indication: METASTATIC RENAL CELL CARCINOMA
     Dosage: 5 MG, QD
     Route: 048
     Dates: start: 20110621, end: 20120124
  8. LASIX [Concomitant]
     Active Substance: FUROSEMIDE
     Indication: METASTATIC RENAL CELL CARCINOMA
     Dosage: 20 MG, UNK
     Route: 048
     Dates: start: 20110621, end: 20120124
  9. GASTER [Concomitant]
     Active Substance: FAMOTIDINE
     Indication: METASTATIC RENAL CELL CARCINOMA
     Dosage: 40 MG, UNK
     Route: 048
     Dates: start: 20110621, end: 20120124
  10. GLIMICRON [Concomitant]
     Active Substance: GLICLAZIDE
     Indication: PRODUCT USED FOR UNKNOWN INDICATION
     Dosage: 20 MG, UNK
     Route: 065
     Dates: start: 20110621, end: 20110816
  11. AMLODIN [Concomitant]
     Active Substance: AMLODIPINE BESYLATE
     Indication: PRODUCT USED FOR UNKNOWN INDICATION
     Dosage: 10 MG, UNK
     Route: 048
     Dates: start: 20110621, end: 20120124
  12. FLUITRAN [Concomitant]
     Active Substance: TRICHLORMETHIAZIDE
     Indication: METASTATIC RENAL CELL CARCINOMA
     Dosage: 1 MG, UNK
     Route: 048
     Dates: start: 20111109, end: 20120124

REACTIONS (12)
  - Haemorrhage intracranial [Unknown]
  - Oedema peripheral [Not Recovered/Not Resolved]
  - Diabetes mellitus [Recovering/Resolving]
  - Hyperuricaemia [Recovering/Resolving]
  - Cerebral haemorrhage [Fatal]
  - C-reactive protein increased [Recovered/Resolved]
  - Anaemia [Recovering/Resolving]
  - Malignant neoplasm progression [Unknown]
  - Blood lactate dehydrogenase increased [Unknown]
  - Blood urea increased [Unknown]
  - Pulmonary haemorrhage [Unknown]
  - Hypoalbuminaemia [Not Recovered/Not Resolved]

NARRATIVE: CASE EVENT DATE: 20110719
